FAERS Safety Report 20372289 (Version 1)
Quarter: 2022Q1

REPORT INFORMATION
  Report Type: Spontaneous
  Country: US (occurrence: US)
  Receive Date: 20220124
  Receipt Date: 20220124
  Transmission Date: 20220423
  Serious: No
  Sender: FDA-Public Use
  Company Number: US-ORGANON-O2201USA000933

PATIENT
  Sex: Female

DRUGS (16)
  1. COZAAR [Suspect]
     Active Substance: LOSARTAN POTASSIUM
  2. PREMARIN [Suspect]
     Active Substance: ESTROGENS, CONJUGATED
     Dosage: 1 TABLET (0.625 MG) BY MOUTH DAILY, FOR 90 DAYS: 90 TABS
     Route: 048
     Dates: start: 20220106
  3. CLINDAMYCIN [Suspect]
     Active Substance: CLINDAMYCIN
     Dosage: UNK
  4. HYDROXYZINE [Suspect]
     Active Substance: HYDROXYZINE HYDROCHLORIDE
  5. NORVASC [Suspect]
     Active Substance: AMLODIPINE BESYLATE
  6. CLARITHROMYCIN [Suspect]
     Active Substance: CLARITHROMYCIN
     Dosage: UNK
  7. DOXYCYCLINE [Suspect]
     Active Substance: DOXYCYCLINE
     Dosage: UNK
  8. LEVOFLOXACIN [Suspect]
     Active Substance: LEVOFLOXACIN
     Dosage: UNK
  9. CODEINE [Suspect]
     Active Substance: CODEINE
     Dosage: UNK
  10. MACROBID [Suspect]
     Active Substance: NITROFURANTOIN\NITROFURANTOIN MONOHYDRATE
     Dosage: UNK
  11. OXYCODONE [Suspect]
     Active Substance: OXYCODONE
     Dosage: UNK
  12. PREDNISONE [Suspect]
     Active Substance: PREDNISONE
     Dosage: UNK
  13. PROPOFOL [Suspect]
     Active Substance: PROPOFOL
     Dosage: UNK
  14. ULTRACET [Suspect]
     Active Substance: ACETAMINOPHEN\TRAMADOL HYDROCHLORIDE
     Dosage: UNK
  15. ULTRAM [Suspect]
     Active Substance: TRAMADOL HYDROCHLORIDE
     Dosage: UNK
  16. SULFADIAZINE [Suspect]
     Active Substance: SULFADIAZINE
     Dosage: UNK

REACTIONS (4)
  - Headache [Unknown]
  - Drug hypersensitivity [Unknown]
  - Cough [Unknown]
  - Palpitations [Unknown]
